FAERS Safety Report 5319049-X (Version None)
Quarter: 2007Q1

REPORT INFORMATION
  Report Type: 
  Country: None (occurrence: None)
  Receive Date: 20070202
  Receipt Date: 20060516
  Transmission Date: 20070707
  Serious: Yes (Hospitalization)
  Sender: FDA-Public Use
  Company Number: 252359

PATIENT
  Age: 82 Year
  Sex: Female
  Weight: 70.3 kg

DRUGS (3)
  1. NOVOLOG [Suspect]
     Indication: INSULIN-REQUIRING TYPE II DIABETES MELLITUS
     Dosage: SLIDING SCALE, SUBCUTANEOUS
     Route: 058
     Dates: start: 20010101
  2. LANTUS [Concomitant]
  3. ASPIRIN [Concomitant]

REACTIONS (1)
  - HYPOGLYCAEMIA [None]
